FAERS Safety Report 23576871 (Version 2)
Quarter: 2024Q2

REPORT INFORMATION
  Report Type: Spontaneous
  Country: HR (occurrence: HR)
  Receive Date: 20240228
  Receipt Date: 20240401
  Transmission Date: 20240716
  Serious: Yes (Death, Other)
  Sender: FDA-Public Use
  Company Number: HR-TAKEDA-2024TUS018054

PATIENT
  Sex: Male

DRUGS (3)
  1. NINLARO [Suspect]
     Active Substance: IXAZOMIB CITRATE
     Indication: Plasma cell myeloma refractory
     Dosage: 4 MILLIGRAM
     Route: 065
     Dates: start: 20190115, end: 20210525
  2. DEXAMETHASONE [Suspect]
     Active Substance: DEXAMETHASONE
     Indication: Plasma cell myeloma refractory
     Dosage: 20 MILLIGRAM
     Route: 065
     Dates: start: 20190115, end: 20210525
  3. REVLIMID [Suspect]
     Active Substance: LENALIDOMIDE
     Indication: Plasma cell myeloma refractory
     Dosage: 25 MILLIGRAM
     Route: 065
     Dates: start: 20190115, end: 20210525

REACTIONS (4)
  - Septic shock [Fatal]
  - Escherichia urinary tract infection [Fatal]
  - Thrombocytopenia [Unknown]
  - Anaemia [Unknown]
